FAERS Safety Report 5737713-5 (Version None)
Quarter: 2008Q2

REPORT INFORMATION
  Report Type: 
  Country: None (occurrence: None)
  Receive Date: 20080514
  Receipt Date: 20080505
  Transmission Date: 20081010
  Serious: Yes (Congenital Anomaly)
  Sender: FDA-Public Use
  Company Number: A0680663A

PATIENT
  Sex: Female

DRUGS (2)
  1. PAXIL [Suspect]
     Indication: DEPRESSION
     Dosage: 20MG PER DAY
     Dates: start: 19980501
  2. VITAMIN TAB [Concomitant]

REACTIONS (7)
  - CONGENITAL NEPHROTIC SYNDROME [None]
  - DRUG EXPOSURE DURING PREGNANCY [None]
  - HEPATOSPLENOMEGALY [None]
  - HYPERGAMMAGLOBULINAEMIA [None]
  - MULTIPLE CONGENITAL ABNORMALITIES [None]
  - POST TRANSPLANT LYMPHOPROLIFERATIVE DISORDER [None]
  - RENAL FAILURE [None]
